FAERS Safety Report 8037823-6 (Version None)
Quarter: 2012Q1

REPORT INFORMATION
  Report Type: 
  Country: None (occurrence: None)
  Receive Date: 20120111
  Receipt Date: 20120105
  Transmission Date: 20120608
  Serious: Yes (Other)
  Sender: FDA-Public Use
  Company Number: US-TEVA-316451USA

PATIENT
  Sex: Male

DRUGS (1)
  1. PROVIGIL [Suspect]
     Indication: SLEEP APNOEA SYNDROME
     Route: 048

REACTIONS (1)
  - AMYOTROPHIC LATERAL SCLEROSIS [None]
